FAERS Safety Report 8227514-0 (Version None)
Quarter: 2012Q1

REPORT INFORMATION
  Report Type: 
  Country: None (occurrence: None)
  Receive Date: 20120322
  Receipt Date: 20120320
  Transmission Date: 20120608
  Serious: Yes (Other)
  Sender: FDA-Public Use
  Company Number: IT-BAYER-2012-027487

PATIENT

DRUGS (5)
  1. NEXAVAR [Suspect]
     Route: 048
  2. CRESTOR [Concomitant]
     Dosage: DAILY DOSE 10 MG
     Route: 048
     Dates: start: 20050101
  3. NEXAVAR [Suspect]
     Indication: RENAL CELL CARCINOMA
     Dosage: 800 MG, DAILY
     Route: 048
     Dates: start: 20080625, end: 20081107
  4. GARDENALE [Concomitant]
     Dosage: DAILY DOSE 100 MG
     Route: 048
     Dates: start: 20060101
  5. DEURSIL [Concomitant]
     Dosage: DAILY DOSE 300 MG
     Route: 048
     Dates: start: 20090123

REACTIONS (3)
  - HEPATOTOXICITY [None]
  - PANCREATIC DISORDER [None]
  - DIARRHOEA [None]
